FAERS Safety Report 25979481 (Version 2)
Quarter: 2025Q4

REPORT INFORMATION
  Report Type: Spontaneous
  Country: US (occurrence: US)
  Receive Date: 20251030
  Receipt Date: 20251211
  Transmission Date: 20260118
  Serious: No
  Sender: PFIZER
  Company Number: US-PFIZER INC-202500121737

PATIENT
  Age: 44 Year
  Sex: Female

DRUGS (1)
  1. XELJANZ XR [Suspect]
     Active Substance: TOFACITINIB CITRATE
     Indication: Axial spondyloarthritis
     Dosage: 11 MG, 1X/DAY, TAKE 1 TABLET(S) EVERY DAY FOR 30 DAYS
     Route: 048

REACTIONS (5)
  - Therapeutic response unexpected [Unknown]
  - Abdominal distension [Unknown]
  - Chest discomfort [Unknown]
  - Off label use [Unknown]
  - Drug effective for unapproved indication [Unknown]
